FAERS Safety Report 12090929 (Version 1)
Quarter: 2016Q1

REPORT INFORMATION
  Report Type: Spontaneous
  Country: US (occurrence: US)
  Receive Date: 20160218
  Receipt Date: 20160218
  Transmission Date: 20160526
  Serious: Yes (Hospitalization)
  Sender: FDA-Public Use
  Company Number: US-B.I. PHARMACEUTICALS,INC./RIDGEFIELD-2016-BI-08797BP

PATIENT
  Age: 69 Year
  Sex: Male
  Weight: 89 kg

DRUGS (2)
  1. MOBIC [Suspect]
     Active Substance: MELOXICAM
     Indication: OSTEOARTHRITIS
     Dosage: 7.5 MG
     Route: 048
     Dates: start: 201110
  2. ASPIRIN. [Suspect]
     Active Substance: ASPIRIN
     Indication: CARDIOVASCULAR EVENT PROPHYLAXIS
     Dosage: 81 MG
     Route: 048
     Dates: start: 2000

REACTIONS (1)
  - Lower gastrointestinal haemorrhage [Recovered/Resolved]

NARRATIVE: CASE EVENT DATE: 20151124
